FAERS Safety Report 5154714-9 (Version None)
Quarter: 2006Q4

REPORT INFORMATION
  Report Type: 
  Country: None (occurrence: None)
  Receive Date: 20061116
  Receipt Date: 20061116
  Transmission Date: 20070319
  Serious: Yes (Other)
  Sender: FDA-Public Use
  Company Number: None

PATIENT
  Age: 75 Year
  Sex: Male
  Weight: 62.5964 kg

DRUGS (1)
  1. HUMIRA [Suspect]
     Indication: RHEUMATOID ARTHRITIS
     Dosage: 40 MG Q OW SQ
     Route: 058
     Dates: start: 20051201, end: 20061101

REACTIONS (2)
  - LUNG DISORDER [None]
  - MYCOBACTERIUM AVIUM COMPLEX INFECTION [None]
